FAERS Safety Report 17000191 (Version 2)
Quarter: 2019Q4

REPORT INFORMATION
  Report Type: Spontaneous
  Country: JP (occurrence: JP)
  Receive Date: 20191106
  Receipt Date: 20191122
  Transmission Date: 20200122
  Serious: Yes (Hospitalization, Other)
  Sender: FDA-Public Use
  Company Number: JP-PFIZER INC-2019476917

PATIENT
  Age: 63 Year
  Sex: Female
  Weight: 37.7 kg

DRUGS (5)
  1. WARFARIN [Suspect]
     Active Substance: WARFARIN
     Dosage: 3 MG, 1X/DAY
     Route: 048
     Dates: start: 20191011
  2. WARFARIN [Suspect]
     Active Substance: WARFARIN
     Dosage: 3.5 MG, 1X/DAY
     Route: 048
     Dates: start: 1990, end: 20191005
  3. ROCEPHIN [Suspect]
     Active Substance: CEFTRIAXONE SODIUM
     Indication: URINARY TRACT INFECTION
     Dosage: 1 G, DAILY
     Route: 041
     Dates: start: 201909
  4. KEFLEX [Suspect]
     Active Substance: CEPHALEXIN
     Dosage: UNK
     Route: 048
  5. WARFARIN [Suspect]
     Active Substance: WARFARIN
     Dosage: 2 MG, 1X/DAY
     Route: 048
     Dates: start: 20191005, end: 20191010

REACTIONS (1)
  - Pneumonia [Recovered/Resolved]

NARRATIVE: CASE EVENT DATE: 20190924
